FAERS Safety Report 4336546-4 (Version None)
Quarter: 2004Q2

REPORT INFORMATION
  Report Type: 
  Country: None (occurrence: None)
  Receive Date: 20040407
  Receipt Date: 20040324
  Transmission Date: 20050107
  Serious: Yes (Other)
  Sender: FDA-Public Use
  Company Number: USA040361098

PATIENT
  Age: 47 Year
  Sex: Female

DRUGS (3)
  1. FORTEO [Suspect]
     Indication: OSTEOPOROSIS
     Dosage: 20 UG/1 DAY
     Dates: start: 20031001
  2. FOSAMAX [Concomitant]
  3. TEGRETOL [Concomitant]

REACTIONS (5)
  - HEART RATE INCREASED [None]
  - HOT FLUSH [None]
  - PAIN [None]
  - PELVIC PERITONEAL ADHESIONS [None]
  - POST PROCEDURAL PAIN [None]
